FAERS Safety Report 9332360 (Version 8)
Quarter: 2014Q2

REPORT INFORMATION
  Report Type: Report from Study
  Country: CA (occurrence: CA)
  Receive Date: 20130606
  Receipt Date: 20140611
  Transmission Date: 20141212
  Serious: Yes (Hospitalization, Other)
  Sender: FDA-Public Use
  Company Number: PHHY2013CA057051

PATIENT
  Sex: Female

DRUGS (7)
  1. CLOZARIL [Suspect]
     Indication: SCHIZOPHRENIA
     Dates: start: 20071215
  2. CLOZARIL [Suspect]
     Dosage: 400 MG, QD
     Route: 048
     Dates: start: 20080115, end: 20140203
  3. CLOZARIL [Suspect]
     Dosage: 550 MG, (100 AT DINNER AND 450 AT HS)
     Route: 048
     Dates: end: 201403
  4. ABILIFY [Concomitant]
  5. ZOLOFT [Concomitant]
  6. INSULIN [Concomitant]
  7. ALLOPURINOL [Concomitant]

REACTIONS (6)
  - Lymphoma [Recovered/Resolved]
  - Neoplasm malignant [Unknown]
  - Disease recurrence [Unknown]
  - Antipsychotic drug level increased [Unknown]
  - White blood cell count decreased [Unknown]
  - Neutrophil count decreased [Unknown]
